FAERS Safety Report 8935635 (Version 2)
Quarter: 2012Q4

REPORT INFORMATION
  Report Type: 
  Country: PE (occurrence: PE)
  Receive Date: 20121130
  Receipt Date: 20121218
  Transmission Date: 20130627
  Serious: Yes (Death, Other)
  Sender: FDA-Public Use
  Company Number: PE-PFIZER INC-2012300278

PATIENT
  Age: 71 Year
  Sex: Female

DRUGS (4)
  1. LYRICA [Suspect]
     Indication: DIABETIC NEUROPATHY
     Dosage: 75 mg, 1x/day
     Route: 048
     Dates: start: 2008, end: 20121105
  2. LIPITOR [Suspect]
     Dosage: 10 mg, 1x/day
     Route: 048
     Dates: start: 2008, end: 20121105
  3. ZOLOFT [Suspect]
     Dosage: 50 mg, 1x/day
     Route: 048
     Dates: start: 201210, end: 20121105
  4. GLUCOPHAGE ^MERCK^ [Concomitant]
     Indication: DIABETES MELLITUS
     Dosage: UNK
     Route: 048
     Dates: start: 2008, end: 20121105

REACTIONS (1)
  - Myocardial infarction [Fatal]
